FAERS Safety Report 22388906 (Version 1)
Quarter: 2023Q2

REPORT INFORMATION
  Report Type: Spontaneous
  Country: US (occurrence: US)
  Receive Date: 20230531
  Receipt Date: 20230531
  Transmission Date: 20230722
  Serious: Yes (Other)
  Sender: FDA-Public Use
  Company Number: US-009507513-2305USA008517

PATIENT
  Age: 70 Year
  Sex: Male

DRUGS (1)
  1. KEYTRUDA [Suspect]
     Active Substance: PEMBROLIZUMAB
     Dosage: 3 CYCLES OF AN ANTI-PD-1 AGENT

REACTIONS (3)
  - Immune-mediated cholangitis [Unknown]
  - Immune-mediated hepatitis [Unknown]
  - Biliary tract disorder [Unknown]
